FAERS Safety Report 6397755-6 (Version None)
Quarter: 2009Q4

REPORT INFORMATION
  Report Type: 
  Country: None (occurrence: None)
  Receive Date: 20091012
  Receipt Date: 20090930
  Transmission Date: 20100525
  Serious: Yes (Hospitalization)
  Sender: FDA-Public Use
  Company Number: DE-PFIZER INC-2009276032

PATIENT
  Age: 74 Year

DRUGS (6)
  1. XALATAN [Suspect]
     Dosage: 2 GTT, 1X/DAY
     Route: 047
     Dates: start: 20090801
  2. DIOVANE [Concomitant]
     Dosage: UNK
  3. ATORVASTATIN CALCIUM [Concomitant]
     Dosage: UNK
  4. BELOC ZOK [Concomitant]
     Dosage: UNK
  5. RAMIPRIL [Concomitant]
     Dosage: UNK
  6. ASPIRIN [Concomitant]
     Dosage: UNK

REACTIONS (2)
  - DIARRHOEA [None]
  - HEADACHE [None]
